FAERS Safety Report 6297837-3 (Version None)
Quarter: 2009Q3

REPORT INFORMATION
  Report Type: 
  Country: None (occurrence: None)
  Receive Date: 20090805
  Receipt Date: 20090724
  Transmission Date: 20100115
  Serious: Yes (Hospitalization)
  Sender: FDA-Public Use
  Company Number: US-PFIZER INC-2009246840

PATIENT
  Sex: Male
  Weight: 68.027 kg

DRUGS (8)
  1. GABAPENTIN [Suspect]
     Indication: NEURALGIA
     Dosage: 300 MG, 2X/DAY
     Route: 048
  2. THYROID TAB [Concomitant]
     Dosage: UNK
     Route: 048
  3. METOPROLOL [Concomitant]
     Dosage: UNK
     Route: 048
  4. PLAVIX [Concomitant]
     Dosage: UNK
     Route: 048
  5. FLOMAX [Concomitant]
     Dosage: UNK
     Route: 048
  6. ACTONEL [Concomitant]
     Dosage: UNK
     Route: 048
  7. PREVACID [Concomitant]
     Dosage: UNK
     Route: 048
  8. PANCRELIPASE [Concomitant]
     Dosage: UNK
     Route: 048

REACTIONS (3)
  - DYSPHAGIA [None]
  - PANCREATICODUODENECTOMY [None]
  - THYROIDECTOMY [None]
